FAERS Safety Report 8271143-X (Version None)
Quarter: 2012Q1

REPORT INFORMATION
  Report Type: 
  Country: None (occurrence: None)
  Receive Date: 20120308
  Receipt Date: 20120125
  Transmission Date: 20120608
  Serious: Yes (Other)
  Sender: FDA-Public Use
  Company Number: PHEH2012US002266

PATIENT
  Age: 26 Year
  Sex: Female

DRUGS (4)
  1. KLONOPIN [Concomitant]
  2. HALDOL (HALODERIDOL DECANOATE) [Concomitant]
  3. FANAPT [Suspect]
     Indication: SCHIZOPHRENIA
     Dosage: 8 MG, BID, ORAL
     Route: 048
     Dates: start: 20111101
  4. ABILIFY [Concomitant]

REACTIONS (1)
  - WEIGHT INCREASED [None]
